FAERS Safety Report 8054933-8 (Version None)
Quarter: 2012Q1

REPORT INFORMATION
  Report Type: 
  Country: None (occurrence: None)
  Receive Date: 20120119
  Receipt Date: 20120109
  Transmission Date: 20120608
  Serious: Yes (Hospitalization)
  Sender: FDA-Public Use
  Company Number: US-BAYER-2010-002211

PATIENT
  Age: 20 Year
  Sex: Female
  Weight: 145.13 kg

DRUGS (1)
  1. YAZ [Suspect]
     Indication: PRODUCT USED FOR UNKNOWN INDICATION
     Dosage: UNK UNK, QD
     Route: 048
     Dates: start: 20060101, end: 20090101

REACTIONS (2)
  - CHOLELITHIASIS [None]
  - PANCREATITIS [None]
